FAERS Safety Report 5776143-7 (Version None)
Quarter: 2008Q2

REPORT INFORMATION
  Report Type: 
  Country: None (occurrence: None)
  Receive Date: 20080613
  Receipt Date: 20080529
  Transmission Date: 20081010
  Serious: Yes (Hospitalization)
  Sender: FDA-Public Use
  Company Number: 2008US001494

PATIENT
  Sex: Male

DRUGS (3)
  1. AMBISOME [Suspect]
     Indication: DRUG USE FOR UNKNOWN INDICATION
     Dosage: IV NOS
     Route: 042
     Dates: start: 20080506, end: 20080514
  2. OXACILLIN [Concomitant]
  3. CITALOPRAM HYDROBROMIDE [Concomitant]

REACTIONS (2)
  - HYPOKALAEMIA [None]
  - METABOLIC ALKALOSIS [None]
